FAERS Safety Report 25200838 (Version 1)
Quarter: 2025Q2

REPORT INFORMATION
  Report Type: Spontaneous
  Country: US (occurrence: US)
  Receive Date: 20250415
  Receipt Date: 20250415
  Transmission Date: 20250716
  Serious: No
  Sender: NOVARTIS
  Company Number: US-002147023-NVSC2025US061738

PATIENT
  Age: 10 Year
  Sex: Female
  Weight: 36.4 kg

DRUGS (2)
  1. ILARIS [Suspect]
     Active Substance: CANAKINUMAB
     Indication: Autoinflammatory disease
     Route: 058
     Dates: start: 20250217, end: 20250410
  2. ILARIS [Suspect]
     Active Substance: CANAKINUMAB
     Route: 065
     Dates: start: 20250410

REACTIONS (3)
  - Headache [Not Recovered/Not Resolved]
  - Pyrexia [Not Recovered/Not Resolved]
  - Fatigue [Not Recovered/Not Resolved]

NARRATIVE: CASE EVENT DATE: 20250408
